FAERS Safety Report 7642761 (Version 6)
Quarter: 2012Q4

REPORT INFORMATION
  Report Type: 
  Country: IT (occurrence: IT)
  Receive Date: 20101027
  Receipt Date: 20120828
  Transmission Date: 20130627
  Serious: Yes (Death, Hospitalization, Other)
  Sender: FDA-Public Use
  Company Number: IT-BAYER-201042961GPV

PATIENT
  Age: 74 Year
  Sex: Male

DRUGS (31)
  1. NEXAVAR [Suspect]
     Indication: HEPATIC NEOPLASM MALIGNANT
     Dosage: 800 mg (Daily Dose), , oral
     Route: 048
     Dates: start: 20100903, end: 20100916
  2. NEXAVAR [Suspect]
     Indication: HEPATIC NEOPLASM MALIGNANT
     Dosage: 400 mg (Daily Dose), , oral
     Route: 048
     Dates: start: 20100916, end: 20100920
  3. NEXAVAR [Suspect]
     Indication: HEPATIC NEOPLASM MALIGNANT
     Route: 048
     Dates: start: 20100920, end: 20101007
  4. TIKLID [Concomitant]
     Indication: ANGIOPATHY
     Dosage: 500 mg (Daily Dose), ,
     Dates: start: 2009
  5. FUROSEMIDE [Concomitant]
     Indication: LIVER DISORDER
     Dosage: 25 mg (Daily Dose), ,
     Dates: start: 2005
  6. FUROSEMIDE [Concomitant]
     Indication: POLYURIA
  7. HUMALOG [Concomitant]
     Indication: DIABETES MELLITUS
     Dosage: 12 u (Daily Dose), ,
     Dates: start: 20100902
  8. INDERAL [Concomitant]
     Indication: PORTAL HYPERTENSION
     Dosage: 20 mg (Daily Dose), ,
     Dates: start: 20100903
  9. MEGACE [Concomitant]
     Indication: CACHEXIA
     Dosage: 160 mg (Daily Dose), ,
     Dates: start: 20100903
  10. RANITIDINE [Concomitant]
     Dosage: IN 250 ML OF PHYSIOLOGICAL SOLUTION
     Route: 042
     Dates: start: 20101005
  11. SANDOSTATINA [Concomitant]
     Dosage: 6 VIALS OF 0.1 MG IN 500 ML OF PHYSIOLOGICAL SOLUTION BY CONTINUOUS INFUSION IN 24 HOURS
     Dates: start: 20101005
  12. PACKED RED BLOOD CELLS [Concomitant]
     Dosage: 1 u (Daily Dose), ,
     Dates: start: 20101005
  13. PACKED RED BLOOD CELLS [Concomitant]
     Dosage: 2 u (Daily Dose), ,
     Dates: start: 20101007
  14. BLOOD SUBSTITUTES AND PLASMA PROTEIN FRACTION [Concomitant]
     Dosage: 2 u (Daily Dose), ,
  15. NOREPINEPHRINE [Concomitant]
  16. GLUCOSE [Concomitant]
     Indication: FLUID REPLACEMENT
     Dosage: 5 %
  17. SODIUM BICARBONATE [Concomitant]
     Indication: HYPERKALAEMIA
     Dosage: 1.4 %
  18. SODIUM BICARBONATE [Concomitant]
     Indication: ACIDOSIS
     Dosage: 8.4%
     Dates: start: 20101007, end: 20101007
  19. GELOFUSINE [Concomitant]
     Dosage: 150 CC
  20. OMEPRAZOLE [Concomitant]
     Route: 042
  21. AMPICILLIN [Concomitant]
  22. SULBACTAM [Concomitant]
  23. METRONIDAZOLE [Concomitant]
  24. MORPHINE [Concomitant]
     Dates: start: 20101006
  25. ANTIHISTAMINES [Concomitant]
     Dates: start: 20101006
  26. PROPOFOL [Concomitant]
     Route: 040
     Dates: start: 20101006
  27. VENTOLIN [Concomitant]
     Indication: HYPERKALAEMIA
     Dosage: 1 puff(s) (Daily Dose), ,
     Dates: start: 20101006
  28. VENTOLIN [Concomitant]
     Indication: HYPERKALAEMIA
     Dosage: 2 VIALS
     Dates: start: 20101007, end: 20101007
  29. KAYEXALATE [Concomitant]
     Route: 054
     Dates: start: 20101006
  30. ETHACRYNIC ACID [Concomitant]
     Dosage: 1 VIAL
     Dates: start: 20101006
  31. PLASMA, FRESH FROZEN [Concomitant]
     Dosage: 2 u (Daily Dose), ,
     Dates: start: 20101007, end: 20101007

REACTIONS (8)
  - Gastrointestinal haemorrhage [Fatal]
  - Diarrhoea [Not Recovered/Not Resolved]
  - Insomnia [Not Recovered/Not Resolved]
  - Depression [Not Recovered/Not Resolved]
  - Hepatic failure [Not Recovered/Not Resolved]
  - Hepatic function abnormal [Not Recovered/Not Resolved]
  - Jaundice [Not Recovered/Not Resolved]
  - Psychomotor hyperactivity [Not Recovered/Not Resolved]
